FAERS Safety Report 10792490 (Version 3)
Quarter: 2015Q2

REPORT INFORMATION
  Report Type: Spontaneous
  Country: JP (occurrence: JP)
  Receive Date: 20150213
  Receipt Date: 20150402
  Transmission Date: 20150821
  Serious: Yes (Hospitalization)
  Sender: FDA-Public Use
  Company Number: JP-009507513-1412JPN009953

PATIENT
  Age: 77 Year
  Sex: Female
  Weight: 40 kg

DRUGS (10)
  1. ABSTRAL [Concomitant]
     Active Substance: FENTANYL CITRATE
     Indication: CANCER PAIN
     Dosage: 100 MG, PRN, AT THE TIME OF PAIN
     Route: 060
     Dates: start: 20141110, end: 20150111
  2. CALONAL [Concomitant]
     Active Substance: ACETAMINOPHEN
     Indication: CANCER PAIN
     Dosage: 200 MG, TID
     Route: 048
     Dates: start: 20140924, end: 20150105
  3. SENNOSIDES. [Concomitant]
     Active Substance: SENNOSIDES
     Indication: CONSTIPATION
     Dosage: 2 DF, PRN, AT THE TIME OF CONSTIPATION
     Route: 048
     Dates: start: 20141121, end: 20141223
  4. FENTOS [Concomitant]
     Active Substance: FENTANYL
     Indication: CANCER PAIN
     Dosage: 1 DF, QD, STANDARD UNIT: 2 MG
     Route: 062
     Dates: start: 20141110, end: 20150112
  5. ZYPREXA [Concomitant]
     Active Substance: OLANZAPINE
     Indication: INCREASED APPETITE
  6. REMERON [Suspect]
     Active Substance: MIRTAZAPINE
     Indication: DEPRESSION
     Dosage: 15 MG, HS
     Route: 048
     Dates: start: 20141203, end: 20141204
  7. MEXITIL [Concomitant]
     Active Substance: MEXILETINE HYDROCHLORIDE
     Indication: EXTRASYSTOLES
     Dosage: 50 MG, TID
     Route: 048
     Dates: start: 20141110, end: 20150105
  8. FENTOS [Concomitant]
     Active Substance: FENTANYL
     Dosage: 1DF, QD, STANDARD UNIT: 4MG
     Route: 062
     Dates: start: 20141112, end: 20150112
  9. MAGMITT [Concomitant]
     Active Substance: MAGNESIUM OXIDE
     Indication: CONSTIPATION
     Dosage: 330 MG, TID
     Route: 048
     Dates: start: 20141110, end: 20150105
  10. ZYPREXA [Concomitant]
     Active Substance: OLANZAPINE
     Indication: NAUSEA
     Dosage: 2.5 MG, QD
     Route: 048
     Dates: start: 20141129, end: 20141202

REACTIONS (2)
  - Pyrexia [Unknown]
  - Erythema multiforme [Not Recovered/Not Resolved]

NARRATIVE: CASE EVENT DATE: 20141205
